FAERS Safety Report 12723452 (Version 1)
Quarter: 2016Q3

REPORT INFORMATION
  Report Type: Spontaneous
  Country: US (occurrence: US)
  Receive Date: 20160908
  Receipt Date: 20160908
  Transmission Date: 20161109
  Serious: No
  Sender: FDA-Public Use
  Company Number: US-PFIZER INC-2016413569

PATIENT
  Age: 50 Year
  Sex: Female
  Weight: 43.54 kg

DRUGS (1)
  1. ZOLOFT [Suspect]
     Active Substance: SERTRALINE HYDROCHLORIDE
     Indication: DEPRESSION
     Dosage: UNK

REACTIONS (4)
  - Aggression [Unknown]
  - Flat affect [Unknown]
  - Depression [Unknown]
  - Disease recurrence [Unknown]
